FAERS Safety Report 4321131-0 (Version None)
Quarter: 2004Q1

REPORT INFORMATION
  Report Type: 
  Country: None (occurrence: None)
  Receive Date: 20040322
  Receipt Date: 20040311
  Transmission Date: 20041129
  Serious: Yes (Other)
  Sender: FDA-Public Use
  Company Number: GB-BRISTOL-MYERS SQUIBB COMPANY-12531398

PATIENT
  Age: 9 Year
  Sex: Female

DRUGS (4)
  1. VIDEX [Suspect]
     Route: 048
  2. TENOFOVIR [Concomitant]
  3. KALETRA [Concomitant]
     Dosage: 2 DOSAGE FORMS IN THE MORNING AND 3 DOSAGE FORMS AT NIGHT
  4. SULFAMETHOXAZOLE AND TRIMETHOPRIM [Concomitant]

REACTIONS (1)
  - PANCREATITIS [None]
